FAERS Safety Report 6108200-X (Version None)
Quarter: 2009Q1

REPORT INFORMATION
  Report Type: 
  Country: None (occurrence: None)
  Receive Date: 20090304
  Receipt Date: 20081021
  Transmission Date: 20090719
  Serious: Yes (Hospitalization)
  Sender: FDA-Public Use
  Company Number: US-002014

PATIENT
  Age: 44 Year
  Sex: Female
  Weight: 50 kg

DRUGS (8)
  1. ISOVUE-370 [Suspect]
     Indication: ABDOMINAL PAIN
     Dosage: 100MG QD INTRAVENOUS (NOT OTHERWISE SPECIFIED)
     Route: 042
     Dates: start: 20081021, end: 20081021
  2. ISOVUE-370 [Suspect]
     Indication: COMPUTERISED TOMOGRAM ABDOMEN
     Dosage: 100MG QD INTRAVENOUS (NOT OTHERWISE SPECIFIED)
     Route: 042
     Dates: start: 20081021, end: 20081021
  3. SEROQUEL [Concomitant]
  4. LORTAB (HYDROCODONE BITARTRATE; PARACETAMOL; PROMETHAZINE HYDROCHLORID [Concomitant]
  5. PROZAC [Concomitant]
  6. DURAGESIC-100 [Concomitant]
  7. BUSPAR [Concomitant]
  8. DIAZEPAM [Concomitant]

REACTIONS (1)
  - ANAPHYLACTIC REACTION [None]
